FAERS Safety Report 8609550-5 (Version None)
Quarter: 2012Q3

REPORT INFORMATION
  Report Type: 
  Country: None (occurrence: None)
  Receive Date: 20120810
  Receipt Date: 20120810
  Transmission Date: 20120928
  Serious: Yes (Hospitalization)
  Sender: FDA-Public Use
  Company Number: None

PATIENT
  Age: 42 Year
  Sex: Male

DRUGS (1)
  1. PHENDIMETRAZINE BITARTRATE TAB [Suspect]
     Indication: WEIGHT DECREASED
     Dosage: 75MG THREE TIMES DAILY PO
     Route: 048
     Dates: start: 20111101, end: 20120120

REACTIONS (7)
  - HYPERVENTILATION [None]
  - DYSPNOEA [None]
  - LEFT VENTRICULAR HYPERTROPHY [None]
  - VENTRICULAR HYPOKINESIA [None]
  - MITRAL VALVE INCOMPETENCE [None]
  - ANXIETY [None]
  - TRICUSPID VALVE INCOMPETENCE [None]
